FAERS Safety Report 4441800-1 (Version None)
Quarter: 2004Q3

REPORT INFORMATION
  Report Type: 
  Country: None (occurrence: None)
  Receive Date: 20040728
  Receipt Date: 20040510
  Transmission Date: 20050211
  Serious: No
  Sender: FDA-Public Use
  Company Number: USA040567081

PATIENT
  Age: 52 Year
  Sex: Female

DRUGS (7)
  1. STRATTERA [Suspect]
     Indication: ATTENTION DEFICIT/HYPERACTIVITY DISORDER
     Dosage: 40 MG IN THE MORNING
     Dates: start: 20040507
  2. FLUOXETINE [Concomitant]
  3. MENEST [Concomitant]
  4. FEMHRT [Concomitant]
  5. MULTI-VITAMIN [Concomitant]
  6. SYNTHROID [Concomitant]
  7. CALCIUM [Concomitant]

REACTIONS (5)
  - DRY MOUTH [None]
  - DYSGEUSIA [None]
  - FEELING ABNORMAL [None]
  - HYPERHIDROSIS [None]
  - NAUSEA [None]
